FAERS Safety Report 4877917-7 (Version None)
Quarter: 2006Q1

REPORT INFORMATION
  Report Type: 
  Country: None (occurrence: None)
  Receive Date: 20060109
  Receipt Date: 20051227
  Transmission Date: 20060701
  Serious: Yes (Other)
  Sender: FDA-Public Use
  Company Number: 2006000721

PATIENT
  Sex: Female

DRUGS (1)
  1. CELEBREX [Suspect]
     Indication: ILL-DEFINED DISORDER
     Dosage: 200 MG
     Dates: start: 20051212

REACTIONS (4)
  - ABDOMINAL DISTENSION [None]
  - CARDIAC DISORDER [None]
  - MALAISE [None]
  - VISION BLURRED [None]
